FAERS Safety Report 4695175-3 (Version None)
Quarter: 2005Q2

REPORT INFORMATION
  Report Type: 
  Country: None (occurrence: None)
  Receive Date: 20050617
  Receipt Date: 20050610
  Transmission Date: 20051028
  Serious: Yes (Hospitalization)
  Sender: FDA-Public Use
  Company Number: 26775

PATIENT
  Age: 77 Year
  Sex: Female

DRUGS (3)
  1. TAMBOCOR [Suspect]
     Indication: ATRIAL FIBRILLATION
     Dosage: (1 IN 1 DAY(S)) ORAL
     Route: 048
     Dates: end: 20041030
  2. ATENOLOL [Suspect]
     Indication: ATRIAL FIBRILLATION
     Dosage: 1 IN 1 DAY(S))
     Dates: start: 20010101
  3. PIRMENOL HYDROCHLORIDE [Suspect]
     Indication: ATRIAL FIBRILLATION
     Dosage: (1 IN 1 DAY(S))
     Dates: start: 20010101

REACTIONS (14)
  - ALANINE AMINOTRANSFERASE INCREASED [None]
  - ANOREXIA [None]
  - ASPARTATE AMINOTRANSFERASE INCREASED [None]
  - ATRIAL FIBRILLATION [None]
  - BLOOD LACTATE DEHYDROGENASE INCREASED [None]
  - CARDIOACTIVE DRUG LEVEL INCREASED [None]
  - LIVER DISORDER [None]
  - PYREXIA [None]
  - SHOCK [None]
  - SICK SINUS SYNDROME [None]
  - SINUS ARREST [None]
  - SYNCOPE [None]
  - VENTRICULAR TACHYCARDIA [None]
  - VOMITING [None]
